FAERS Safety Report 4269360-9 (Version None)
Quarter: 2004Q1

REPORT INFORMATION
  Report Type: 
  Country: None (occurrence: None)
  Receive Date: 20040108
  Receipt Date: 20031226
  Transmission Date: 20041129
  Serious: Yes (Life-Threatening)
  Sender: FDA-Public Use
  Company Number: CIP03003484

PATIENT
  Age: 70 Year
  Sex: Male

DRUGS (9)
  1. DIDRONEL [Suspect]
     Indication: OSTEOPOROSIS
     Dosage: 200 MG ONCE DAILY, ORAL
     Route: 048
     Dates: start: 20030512, end: 20031117
  2. BECOTIDE (BECLOMETASONE DIPROPIONATE) [Concomitant]
  3. CLINORIL [Concomitant]
  4. FAMOTIDINE [Concomitant]
  5. HOKUNALIN (TULOBUTEROL HYDROCHLORIDE) [Concomitant]
  6. INTEBAN (INDOMETACIN) CREAM [Concomitant]
  7. THEO-DUR [Concomitant]
  8. PROCATEROL HCL [Concomitant]
  9. MUCODYNE (CARBOCISTEINE) [Concomitant]

REACTIONS (1)
  - PLATELET COUNT DECREASED [None]
